FAERS Safety Report 23721255 (Version 1)
Quarter: 2024Q2

REPORT INFORMATION
  Report Type: Spontaneous
  Country: US (occurrence: US)
  Receive Date: 20240409
  Receipt Date: 20240409
  Transmission Date: 20240716
  Serious: Yes (Death, Hospitalization, Other)
  Sender: FDA-Public Use
  Company Number: US-HALEON-USCH2024AMR016207

PATIENT
  Age: 14 Year
  Sex: Male

DRUGS (2)
  1. DEXTROMETHORPHAN [Suspect]
     Active Substance: DEXTROMETHORPHAN
     Indication: Product used for unknown indication
  2. FLUOXETINE [Suspect]
     Active Substance: FLUOXETINE HYDROCHLORIDE
     Indication: Product used for unknown indication

REACTIONS (11)
  - Completed suicide [Fatal]
  - Depression [Unknown]
  - Suicidal ideation [Unknown]
  - Intentional self-injury [Unknown]
  - Serotonin syndrome [Unknown]
  - Mental status changes [Unknown]
  - Toxicity to various agents [Unknown]
  - Homicide [Unknown]
  - Sexual abuse [Unknown]
  - Drug interaction [Unknown]
  - Drug abuse [Unknown]
